FAERS Safety Report 7310665-2 (Version None)
Quarter: 2011Q1

REPORT INFORMATION
  Report Type: 
  Country: None (occurrence: None)
  Receive Date: 20110224
  Receipt Date: 20110128
  Transmission Date: 20110831
  Serious: No
  Sender: FDA-Public Use
  Company Number: US-B.I. PHARMACEUTICALS,INC./RIDGEFIELD-2011-BP-02893BP

PATIENT
  Age: 82 Year
  Sex: Female

DRUGS (14)
  1. KLOR-CON [Concomitant]
  2. BUTAL-CAF-APAP-COD-CAP [Concomitant]
  3. PRADAXA [Suspect]
     Indication: ATRIAL FIBRILLATION
     Dosage: 300 MG
     Route: 048
     Dates: start: 20110106
  4. FUROSEMIDE [Concomitant]
  5. DIGOXIN [Concomitant]
  6. EPLERENONE [Concomitant]
  7. ATENELOL [Concomitant]
  8. TEKTURNA HCT [Concomitant]
  9. ACTONEL [Concomitant]
     Indication: OSTEOPOROSIS
  10. PRADAXA [Suspect]
     Indication: CEREBROVASCULAR ACCIDENT PROPHYLAXIS
  11. IPRATROPIUM BROMIDE [Concomitant]
  12. ENTOCORT EC [Concomitant]
  13. PERFOROMIST [Concomitant]
  14. LEVOTHYROXINE SODIUM [Concomitant]

REACTIONS (1)
  - NASAL DISCOMFORT [None]
